FAERS Safety Report 11749953 (Version 1)
Quarter: 2015Q4

REPORT INFORMATION
  Report Type: Spontaneous
  Country: US (occurrence: None)
  Receive Date: 20151117
  Receipt Date: 20151117
  Transmission Date: 20160304
  Serious: No
  Sender: FDA-Public Use
  Company Number: None

PATIENT
  Age: 68 Year
  Sex: Female
  Weight: 77.5 kg

DRUGS (1)
  1. NEULASTA [Suspect]
     Active Substance: PEGFILGRASTIM
     Dates: start: 20151113

REACTIONS (5)
  - Device malfunction [None]
  - White blood cell count increased [None]
  - Dyspnoea [None]
  - Device failure [None]
  - Tachycardia [None]

NARRATIVE: CASE EVENT DATE: 20151114
